FAERS Safety Report 8017376-9 (Version None)
Quarter: 2012Q1

REPORT INFORMATION
  Report Type: 
  Country: None (occurrence: None)
  Receive Date: 20120102
  Receipt Date: 20111209
  Transmission Date: 20120608
  Serious: No
  Sender: FDA-Public Use
  Company Number: US-ROXANE LABORATORIES, INC.-2011-RO-01659RO

PATIENT
  Sex: Female

DRUGS (2)
  1. CHEMOTHERAPY [Concomitant]
     Indication: NEOPLASM MALIGNANT
  2. MEGESTROL ACETATE [Suspect]
     Indication: DECREASED APPETITE
     Dosage: 20 ML
     Route: 048
     Dates: start: 20110809

REACTIONS (2)
  - LIQUID PRODUCT PHYSICAL ISSUE [None]
  - DRUG INEFFECTIVE [None]
